FAERS Safety Report 21615847 (Version 1)
Quarter: 2022Q4

REPORT INFORMATION
  Report Type: Spontaneous
  Country: CN (occurrence: CN)
  Receive Date: 20221118
  Receipt Date: 20221118
  Transmission Date: 20230113
  Serious: Yes (Other)
  Sender: FDA-Public Use
  Company Number: None

PATIENT
  Age: 5 Year
  Sex: Female
  Weight: 13.4 kg

DRUGS (4)
  1. CYCLOPHOSPHAMIDE [Suspect]
     Active Substance: CYCLOPHOSPHAMIDE
     Indication: Rhabdomyosarcoma
     Dosage: 0.75 G, ONCE DAILY, DILUTED WITH 100 ML OF 4:1 GLUCOSE AND SODIUM CHLORIDE
     Route: 041
     Dates: start: 20220830, end: 20220831
  2. DEXTROSE\SODIUM CHLORIDE [Suspect]
     Active Substance: DEXTROSE\SODIUM CHLORIDE
     Indication: Medication dilution
     Dosage: 100 ML, ONCE DAILY, USED TO DILUTE 0.75 G CYCLOPHOSPHAMIDE
     Route: 041
     Dates: start: 20220830, end: 20220831
  3. SODIUM CHLORIDE [Suspect]
     Active Substance: SODIUM CHLORIDE
     Indication: Medication dilution
     Dosage: 250 ML, ONCE DAILY, USED TO DILUTE 23 MG EPIRUBICIN
     Route: 041
     Dates: start: 20220830, end: 20220831
  4. EPIRUBICIN [Suspect]
     Active Substance: EPIRUBICIN
     Indication: Rhabdomyosarcoma
     Dosage: 23 MG, ONCE DAILY, DILUTED WITH 250 ML OF 0.9 % SODIUM CHLORIDE
     Route: 041
     Dates: start: 20220830, end: 20220831

REACTIONS (1)
  - Myelosuppression [Recovering/Resolving]

NARRATIVE: CASE EVENT DATE: 20220906
